FAERS Safety Report 17458825 (Version 1)
Quarter: 2020Q1

REPORT INFORMATION
  Report Type: Spontaneous
  Country: US (occurrence: US)
  Receive Date: 20200225
  Receipt Date: 20200225
  Transmission Date: 20200409
  Serious: No
  Sender: FDA-Public Use
  Company Number: US-IGSA-SR10008506

PATIENT
  Age: 69 Year
  Sex: Female
  Weight: 90 kg

DRUGS (23)
  1. BUMETANIDE. [Concomitant]
     Active Substance: BUMETANIDE
  2. CITALOPRAM [Concomitant]
     Active Substance: CITALOPRAM HYDROBROMIDE
  3. TOUJEO [Concomitant]
     Active Substance: INSULIN GLARGINE
  4. SPIRONOLACTONE. [Concomitant]
     Active Substance: SPIRONOLACTONE
  5. TRESIBA [Concomitant]
     Active Substance: INSULIN DEGLUDEC
  6. DEXILANT [Concomitant]
     Active Substance: DEXLANSOPRAZOLE
  7. DOXAZOSIN [Concomitant]
     Active Substance: DOXAZOSIN MESYLATE
  8. CLONAZEPAM. [Concomitant]
     Active Substance: CLONAZEPAM
  9. PROLASTIN-C LIQUID [Suspect]
     Active Substance: .ALPHA.1-PROTEINASE INHIBITOR HUMAN
     Indication: ALPHA-1 ANTI-TRYPSIN DEFICIENCY
     Dosage: 5400 MG, UNK
     Dates: start: 20190527
  10. AZATHIOPRINE. [Concomitant]
     Active Substance: AZATHIOPRINE
  11. NOVOLOG [Concomitant]
     Active Substance: INSULIN ASPART
  12. LEVETIRACETAM. [Concomitant]
     Active Substance: LEVETIRACETAM
  13. MAGNESIUM [Concomitant]
     Active Substance: MAGNESIUM
  14. INDERAL [Concomitant]
     Active Substance: PROPRANOLOL HYDROCHLORIDE
  15. ALBUTEROL                          /00139501/ [Concomitant]
     Active Substance: ALBUTEROL
     Route: 055
  16. AMITRIPTYLINE [Concomitant]
     Active Substance: AMITRIPTYLINE
  17. SYMBICORT [Concomitant]
     Active Substance: BUDESONIDE\FORMOTEROL FUMARATE DIHYDRATE
  18. CYCLOBENZAPRINE. [Concomitant]
     Active Substance: CYCLOBENZAPRINE
  19. PROLASTIN-C LIQUID [Suspect]
     Active Substance: .ALPHA.1-PROTEINASE INHIBITOR HUMAN
     Dosage: 5400 MG, UNK
     Dates: start: 20190520
  20. ISOSORBIDE MONONITRATE. [Concomitant]
     Active Substance: ISOSORBIDE MONONITRATE
  21. LORAZEPAM. [Concomitant]
     Active Substance: LORAZEPAM
  22. POTASSIUM CL [Concomitant]
     Active Substance: POTASSIUM CHLORIDE
  23. HYDROXYZINE HCL [Concomitant]
     Active Substance: HYDROXYZINE HYDROCHLORIDE

REACTIONS (2)
  - Tension headache [Recovered/Resolved]
  - Fatigue [Recovering/Resolving]

NARRATIVE: CASE EVENT DATE: 20190520
